FAERS Safety Report 12213987 (Version 3)
Quarter: 2016Q2

REPORT INFORMATION
  Report Type: Spontaneous
  Country: BR (occurrence: BR)
  Receive Date: 20160328
  Receipt Date: 20160616
  Transmission Date: 20160815
  Serious: Yes (Disabling, Other)
  Sender: FDA-Public Use
  Company Number: BR-ABBVIE-16P-020-1592657-00

PATIENT
  Sex: Male
  Weight: 55 kg

DRUGS (3)
  1. LAMOTRIGINE. [Concomitant]
     Active Substance: LAMOTRIGINE
     Indication: SEIZURE
     Route: 048
     Dates: start: 2005
  2. DEPAKENE [Suspect]
     Active Substance: VALPROIC ACID
     Indication: PRODUCT USED FOR UNKNOWN INDICATION
     Route: 065
  3. DEPAKENE [Suspect]
     Active Substance: VALPROIC ACID
     Route: 065
     Dates: start: 2005

REACTIONS (6)
  - Fall [Unknown]
  - Drug administration error [Unknown]
  - Blindness unilateral [Unknown]
  - Seizure [Unknown]
  - Limb injury [Unknown]
  - Product quality issue [Unknown]

NARRATIVE: CASE EVENT DATE: 2007
